FAERS Safety Report 10259942 (Version 3)
Quarter: 2014Q4

REPORT INFORMATION
  Report Type: Spontaneous
  Country: JP (occurrence: JP)
  Receive Date: 20140625
  Receipt Date: 20141020
  Transmission Date: 20150528
  Serious: Yes (Hospitalization, Other)
  Sender: FDA-Public Use
  Company Number: JP-ASTRAZENECA-2014SE45832

PATIENT
  Age: 53 Year
  Sex: Female

DRUGS (3)
  1. QUETIAPINE (NON AZ PRODUCT) [Suspect]
     Active Substance: QUETIAPINE
     Indication: DEPRESSION
     Route: 048
  2. MIRTAZAPINE. [Suspect]
     Active Substance: MIRTAZAPINE
     Indication: DEPRESSION POSTOPERATIVE
  3. OLANZAPINE. [Suspect]
     Active Substance: OLANZAPINE
     Indication: DEPRESSION POSTOPERATIVE

REACTIONS (11)
  - Acute kidney injury [None]
  - Postrenal failure [Unknown]
  - Abdominal pain lower [None]
  - Lung carcinoma cell type unspecified stage I [None]
  - Respiratory distress [None]
  - Urinary tract disorder [None]
  - Hyponatraemia [Unknown]
  - Off label use [Unknown]
  - Inflammation [None]
  - Ascites [Unknown]
  - Urinary retention [Unknown]
